FAERS Safety Report 18145769 (Version 4)
Quarter: 2020Q3

REPORT INFORMATION
  Report Type: Spontaneous
  Country: JP (occurrence: JP)
  Receive Date: 20200813
  Receipt Date: 20200918
  Transmission Date: 20201103
  Serious: Yes (Hospitalization, Other)
  Sender: FDA-Public Use
  Company Number: JP-PFIZER INC-2016499103

PATIENT
  Age: 76 Year
  Sex: Male

DRUGS (21)
  1. LIVALO [Concomitant]
     Active Substance: PITAVASTATIN CALCIUM
     Dosage: UNK UNK, UNKNOWN FREQ.
     Route: 065
  2. ACINON [NIZATIDINE] [Concomitant]
     Dosage: UNK UNK, UNKNOWN FREQ.
     Route: 065
  3. GOSERELIN ACETATE [Concomitant]
     Active Substance: GOSERELIN ACETATE
     Indication: PROSTATE CANCER
     Dosage: UNK UNK, UNKNOWN FREQ.
     Route: 065
  4. CELECOX [Suspect]
     Active Substance: CELECOXIB
     Indication: ACUTE MYOCARDIAL INFARCTION
     Dosage: 200 MG/DAY, UNKNOWN FREQ.
     Route: 048
  5. NAUZELIN [Concomitant]
     Active Substance: DOMPERIDONE
     Dosage: UNK UNK, UNKNOWN FREQ.
     Route: 065
  6. ALLEGRA [Concomitant]
     Active Substance: FEXOFENADINE HYDROCHLORIDE
     Dosage: UNK UNK, UNKNOWN FREQ.
     Route: 065
  7. ENZALUTAMIDE [Suspect]
     Active Substance: ENZALUTAMIDE
     Dosage: 80 MG/DAY, UNKNOWN FREQ.
     Route: 048
     Dates: start: 20161110, end: 20161222
  8. ENZALUTAMIDE [Suspect]
     Active Substance: ENZALUTAMIDE
     Dosage: 120 MG/DAY, UNKNOWN FREQ.
     Route: 048
     Dates: start: 20161222, end: 20170105
  9. ENZALUTAMIDE [Suspect]
     Active Substance: ENZALUTAMIDE
     Dosage: 160 MG/DAY, UNKNOWN FREQ.
     Route: 048
     Dates: start: 20170105, end: 20170201
  10. ZOLADEX [Concomitant]
     Active Substance: GOSERELIN ACETATE
     Dosage: 10.8 MG/DAY, UNKNOWN FREQ.
     Route: 058
     Dates: start: 20150816
  11. ADETPHOS [Concomitant]
     Active Substance: ADENOSINE TRIPHOSPHATE
     Dosage: UNK UNK, UNKNOWN FREQ.
     Route: 065
  12. ULGUT [BENEXATE HYDROCHLORIDE] [Concomitant]
     Dosage: UNK UNK, UNKNOWN FREQ.
     Route: 065
  13. ARTIST [Concomitant]
     Active Substance: CARVEDILOL
     Dosage: UNK UNK, UNKNOWN FREQ.
     Route: 065
  14. CONSTAN [ALPRAZOLAM] [Concomitant]
     Active Substance: ALPRAZOLAM
     Dosage: UNK UNK, UNKNOWN FREQ.
     Route: 065
  15. FLUTAMIDE. [Concomitant]
     Active Substance: FLUTAMIDE
     Indication: HORMONE-REFRACTORY PROSTATE CANCER
     Dosage: UNK UNK, UNKNOWN FREQ.
     Route: 065
  16. ASPIRIN [ACETYLSALICYLIC ACID] [Concomitant]
     Active Substance: ASPIRIN
     Indication: ACUTE MYOCARDIAL INFARCTION
     Dosage: UNK UNK, UNKNOWN FREQ.
  17. EPADEL [EICOSAPENTAENOIC ACID] [Concomitant]
     Active Substance: ICOSAPENT
     Dosage: UNK UNK, UNKNOWN FREQ.
     Route: 065
  18. ENZALUTAMIDE [Suspect]
     Active Substance: ENZALUTAMIDE
     Indication: HORMONE-REFRACTORY PROSTATE CANCER
     Dosage: 160 MG/DAY, UNKNOWN FREQ.
     Route: 048
     Dates: start: 20160929, end: 20161011
  19. HARNAL [Suspect]
     Active Substance: TAMSULOSIN HYDROCHLORIDE
     Dosage: 0.2 MG/DAY, ONCE DAILY
     Route: 048
  20. METHYCOBAL [Concomitant]
     Active Substance: METHYLCOBALAMIN
     Dosage: UNK UNK, UNKNOWN FREQ.
     Route: 065
  21. SPIRIVA [Concomitant]
     Active Substance: TIOTROPIUM BROMIDE MONOHYDRATE
     Dosage: UNK UNK, UNKNOWN FREQ.
     Route: 065

REACTIONS (3)
  - Thrombocytopenia [Recovered/Resolved]
  - Seizure [Recovered/Resolved]
  - Intentional product misuse [Unknown]

NARRATIVE: CASE EVENT DATE: 20161011
